FAERS Safety Report 7287359-5 (Version None)
Quarter: 2011Q1

REPORT INFORMATION
  Report Type: 
  Country: None (occurrence: None)
  Receive Date: 20110211
  Receipt Date: 20110131
  Transmission Date: 20110831
  Serious: Yes (Hospitalization)
  Sender: FDA-Public Use
  Company Number: US-JNJFOC-20110200763

PATIENT
  Age: 85 Year
  Sex: Male
  Weight: 56.7 kg

DRUGS (6)
  1. EXTRA STRENGTH TYLENOL [Suspect]
     Route: 048
  2. EXTRA STRENGTH TYLENOL [Suspect]
     Indication: ANALGESIC THERAPY
     Dosage: 1000 MG, EVERY 6 TO 8 HOURS DAILY, FOR AN YEAR.
     Route: 048
  3. ANTIHYPERTENSIVES [Concomitant]
     Indication: HYPERTENSION
     Route: 065
  4. TYLENOL (CAPLET) [Suspect]
     Route: 048
  5. TYLENOL (CAPLET) [Suspect]
     Indication: ANALGESIC THERAPY
     Dosage: AS DIRECTED, EVERY 6 HOURS FOR ABOUT 3 DAYS
     Route: 048
  6. CHEMOTHERAPY [Concomitant]
     Indication: NEOPLASM MALIGNANT
     Route: 065

REACTIONS (1)
  - LIVER DISORDER [None]
